FAERS Safety Report 8338716-7 (Version None)
Quarter: 2012Q2

REPORT INFORMATION
  Report Type: 
  Country: None (occurrence: None)
  Receive Date: 20120504
  Receipt Date: 20120420
  Transmission Date: 20120825
  Serious: Yes (Other)
  Sender: FDA-Public Use
  Company Number: DE-JUTA GMBH-2012-05895

PATIENT
  Age: 75 Year
  Sex: Female

DRUGS (2)
  1. ALENDRONATE SODIUM [Suspect]
     Indication: OSTEOPOROSIS
     Dosage: 70 MG, DAILY
     Route: 065
  2. ETIDRONATE DISODIUM [Suspect]
     Indication: OSTEOPOROSIS
     Dosage: UNK
     Route: 065

REACTIONS (5)
  - PATELLA FRACTURE [None]
  - FEMUR FRACTURE [None]
  - HAND FRACTURE [None]
  - FOOT FRACTURE [None]
  - FALL [None]
